FAERS Safety Report 14308959 (Version 2)
Quarter: 2017Q4

REPORT INFORMATION
  Report Type: Spontaneous
  Country: US (occurrence: US)
  Receive Date: 20171220
  Receipt Date: 20171222
  Transmission Date: 20180321
  Serious: Yes (Hospitalization, Other)
  Sender: FDA-Public Use
  Company Number: US-GLAXOSMITHKLINE-US2017GSK194018

PATIENT
  Age: 61 Year
  Sex: Female

DRUGS (14)
  1. NEXIUM [Concomitant]
     Active Substance: ESOMEPRAZOLE MAGNESIUM
  2. BENLYSTA [Suspect]
     Active Substance: BELIMUMAB
     Indication: SYSTEMIC LUPUS ERYTHEMATOSUS
     Dosage: UNK UNK, CYC
     Dates: start: 201702
  3. TYLENOL [Concomitant]
     Active Substance: ACETAMINOPHEN
  4. CLARINEX [Concomitant]
     Active Substance: DESLORATADINE
  5. TRAMADOL. [Concomitant]
     Active Substance: TRAMADOL
  6. VITAMIN D3 [Concomitant]
     Active Substance: CHOLECALCIFEROL
  7. CRESTOR [Concomitant]
     Active Substance: ROSUVASTATIN CALCIUM
  8. NABUMETONE. [Concomitant]
     Active Substance: NABUMETONE
  9. CALCIUM [Concomitant]
     Active Substance: CALCIUM
  10. MUCINEX [Concomitant]
     Active Substance: GUAIFENESIN
  11. PLAQUENIL [Concomitant]
     Active Substance: HYDROXYCHLOROQUINE SULFATE
  12. SINGULAIR [Concomitant]
     Active Substance: MONTELUKAST SODIUM
  13. LISINOPRIL. [Suspect]
     Active Substance: LISINOPRIL
     Indication: HYPERTENSION
     Dosage: UNK UNK, U
  14. PREDNISONE. [Concomitant]
     Active Substance: PREDNISONE

REACTIONS (9)
  - Abdominal pain upper [Recovered/Resolved]
  - Gastrostomy [Unknown]
  - Diverticulitis [Unknown]
  - Gastrointestinal surgery [Unknown]
  - Hypertension [Recovered/Resolved]
  - Drug dose omission [Unknown]
  - Diverticular perforation [Unknown]
  - Hypotension [Recovered/Resolved]
  - Gastroenteritis viral [Recovered/Resolved]

NARRATIVE: CASE EVENT DATE: 2017
